FAERS Safety Report 11609154 (Version 1)
Quarter: 2015Q4

REPORT INFORMATION
  Report Type: Spontaneous
  Country: US (occurrence: US)
  Receive Date: 20151007
  Receipt Date: 20151007
  Transmission Date: 20160304
  Serious: No
  Sender: FDA-Public Use
  Company Number: GXBR2015US002031

PATIENT
  Sex: Female

DRUGS (1)
  1. SOLARAZE [Suspect]
     Active Substance: DICLOFENAC SODIUM
     Indication: PRODUCT USED FOR UNKNOWN INDICATION
     Dosage: 3 %, PRN
     Route: 061

REACTIONS (1)
  - Off label use [Not Recovered/Not Resolved]
